FAERS Safety Report 17571943 (Version 1)
Quarter: 2020Q1

REPORT INFORMATION
  Report Type: Spontaneous
  Country: DE (occurrence: DE)
  Receive Date: 20200323
  Receipt Date: 20200323
  Transmission Date: 20200409
  Serious: Yes (Hospitalization)
  Sender: FDA-Public Use
  Company Number: DE-GUERBET-DE-20200032

PATIENT
  Age: 57 Year
  Sex: Female
  Weight: 68 kg

DRUGS (2)
  1. DOTAREM [Suspect]
     Active Substance: GADOTERATE MEGLUMINE
     Indication: DEAFNESS NEUROSENSORY
  2. DOTAREM [Suspect]
     Active Substance: GADOTERATE MEGLUMINE
     Indication: TINNITUS
     Route: 042

REACTIONS (5)
  - Cardiovascular disorder [Unknown]
  - Dyspnoea [Unknown]
  - Eye pruritus [Unknown]
  - Lacrimation increased [Unknown]
  - Eye swelling [Unknown]
